FAERS Safety Report 15745358 (Version 1)
Quarter: 2018Q4

REPORT INFORMATION
  Report Type: Report from Study
  Country: US (occurrence: US)
  Receive Date: 20181220
  Receipt Date: 20181220
  Transmission Date: 20190205
  Serious: Yes (Hospitalization, Disabling, Other)
  Sender: FDA-Public Use
  Company Number: US-GILEAD-2018-0380955

PATIENT
  Age: 70 Year
  Sex: Male

DRUGS (2)
  1. ISOSORBIDE MONONITRATE. [Concomitant]
     Active Substance: ISOSORBIDE MONONITRATE
     Indication: HEADACHE
  2. RANOLAZINE. [Suspect]
     Active Substance: RANOLAZINE
     Indication: ISCHAEMIA
     Dosage: 500 MG, BID
     Route: 048
     Dates: start: 20181214

REACTIONS (5)
  - Coronary artery bypass [Recovered/Resolved]
  - Off label use [Not Recovered/Not Resolved]
  - Coronary artery disease [Not Recovered/Not Resolved]
  - Myocardial ischaemia [Not Recovered/Not Resolved]
  - Dyspnoea exertional [Not Recovered/Not Resolved]

NARRATIVE: CASE EVENT DATE: 20181214
